FAERS Safety Report 10461689 (Version 1)
Quarter: 2014Q3

REPORT INFORMATION
  Report Type: Spontaneous
  Country: TH (occurrence: None)
  Receive Date: 20140916
  Receipt Date: 20140916
  Transmission Date: 20150326
  Serious: Yes (Death, Hospitalization)
  Sender: FDA-Public Use
  Company Number: 2014HINLIT0809

PATIENT
  Age: 49 Year
  Sex: Female

DRUGS (4)
  1. LAMIVUDINE. [Suspect]
     Active Substance: LAMIVUDINE
     Indication: HIV INFECTION
  2. CAFFEINE/ERGOTAMINE [Suspect]
     Active Substance: CAFFEINE\ERGOTAMINE
     Indication: HEADACHE
  3. LOPINAVIR + RITONAVIR (LOPINAVIR, RITONAVIR) UNKNOWN [Suspect]
     Active Substance: LOPINAVIR\RITONAVIR
     Indication: HIV INFECTION
  4. ZIDOVUDINE. [Suspect]
     Active Substance: ZIDOVUDINE
     Indication: HIV INFECTION

REACTIONS (7)
  - Hypotension [None]
  - Rhabdomyolysis [None]
  - Overdose [None]
  - Drug interaction [None]
  - Ergot poisoning [None]
  - Cardiac arrest [None]
  - Renal failure acute [None]
